FAERS Safety Report 6235622-9 (Version None)
Quarter: 2009Q2

REPORT INFORMATION
  Report Type: 
  Country: None (occurrence: None)
  Receive Date: 20090616
  Receipt Date: 20090604
  Transmission Date: 20091009
  Serious: Yes (Other)
  Sender: FDA-Public Use
  Company Number: A-CH2009-24386

PATIENT
  Age: 33 Year
  Sex: Female
  Weight: 56 kg

DRUGS (7)
  1. TRACLEER [Suspect]
     Indication: PULMONARY ARTERIAL HYPERTENSION
     Dosage: 125 MG, BID, ORAL
     Route: 048
     Dates: start: 20080729, end: 20090313
  2. THYROHORMONE (LEVOTHYROXINE SODIUM) [Concomitant]
  3. SALOSPIR (ACETYLSALICYLIC ACID) [Concomitant]
  4. ONEALFA (ALFACALCIDOL) [Concomitant]
  5. DEFEROXAMINE (DEFEROXAMINE) [Concomitant]
  6. DEFERIPRONE (DEFERIPRONE) [Concomitant]
  7. CARNITINE (CARNITINE) [Concomitant]

REACTIONS (2)
  - DRUG EXPOSURE DURING PREGNANCY [None]
  - PREGNANCY [None]
